FAERS Safety Report 9116613 (Version 1)
Quarter: 2013Q1

REPORT INFORMATION
  Report Type: Spontaneous
  Country: AT (occurrence: AT)
  Receive Date: 20130225
  Receipt Date: 20130225
  Transmission Date: 20140127
  Serious: Yes (Death, Hospitalization)
  Sender: FDA-Public Use
  Company Number: AT-ROCHE-1190030

PATIENT
  Age: 75 Year
  Sex: Female
  Weight: 48 kg

DRUGS (2)
  1. TOCILIZUMAB [Suspect]
     Indication: RHEUMATOID ARTHRITIS
     Route: 065
     Dates: start: 200904
  2. TOCILIZUMAB [Suspect]
     Route: 042
     Dates: start: 20110907, end: 20110907

REACTIONS (2)
  - Cerebral haemorrhage [Fatal]
  - Pneumonia [Unknown]
